FAERS Safety Report 8767226 (Version 3)
Quarter: 2012Q4

REPORT INFORMATION
  Report Type: 
  Country: US (occurrence: US)
  Receive Date: 20120904
  Receipt Date: 20121023
  Transmission Date: 20130627
  Serious: Yes (Death)
  Sender: FDA-Public Use
  Company Number: US-GLAXOSMITHKLINE-A0991802A

PATIENT
  Age: 64 Year
  Sex: Female
  Weight: 58.6 kg

DRUGS (5)
  1. TYKERB [Suspect]
     Indication: BREAST CANCER
     Dosage: 1500MG Per day
     Route: 048
     Dates: start: 201111, end: 20120621
  2. PROTONIX [Concomitant]
  3. SYNTHROID [Concomitant]
  4. HYDROCODONE [Concomitant]
  5. ATIVAN [Concomitant]

REACTIONS (2)
  - Death [Fatal]
  - Malnutrition [Not Recovered/Not Resolved]
